FAERS Safety Report 7465510-1 (Version None)
Quarter: 2011Q2

REPORT INFORMATION
  Report Type: 
  Country: None (occurrence: None)
  Receive Date: 20110509
  Receipt Date: 20110425
  Transmission Date: 20111010
  Serious: Yes (Hospitalization)
  Sender: FDA-Public Use
  Company Number: US-ROCHE-773671

PATIENT
  Sex: Male
  Weight: 63.9 kg

DRUGS (14)
  1. AVASTIN [Suspect]
     Indication: OESOPHAGEAL CANCER METASTATIC
     Route: 065
     Dates: start: 20110308
  2. HERCEPTIN [Suspect]
     Indication: OESOPHAGEAL CANCER METASTATIC
     Route: 065
     Dates: start: 20110315, end: 20110405
  3. ONDANSERTRON HYDROCHLORIDE [Concomitant]
  4. DEXAMETHASONE [Concomitant]
  5. METOCLOPRAMIDE HCL [Concomitant]
  6. LANSOPRAZOLE [Concomitant]
  7. AVASTIN [Suspect]
     Dosage: MAY RESTART ON 10 MAY 2011
     Route: 065
     Dates: start: 20110315, end: 20110426
  8. CAPECITABINE [Suspect]
     Indication: OESOPHAGEAL CANCER METASTATIC
     Dosage: 2 WKS ON 1 OFF
     Route: 065
     Dates: start: 20110315, end: 20110405
  9. CITALOPRAM [Concomitant]
  10. METOPROLOL TARTRATE [Concomitant]
  11. OXALIPLATIN [Suspect]
     Indication: OESOPHAGEAL CANCER METASTATIC
     Route: 065
     Dates: start: 20110315, end: 20110405
  12. COMPAZINE [Concomitant]
  13. LOMOTIL [Concomitant]
  14. LORAZEPAM [Concomitant]

REACTIONS (3)
  - DIARRHOEA [None]
  - DEHYDRATION [None]
  - PALMAR ERYTHEMA [None]
